FAERS Safety Report 7970059-3 (Version None)
Quarter: 2011Q4

REPORT INFORMATION
  Report Type: 
  Country: None (occurrence: None)
  Receive Date: 20111212
  Receipt Date: 20111201
  Transmission Date: 20120403
  Serious: No
  Sender: FDA-Public Use
  Company Number: US-JNJFOC-20111201555

PATIENT
  Sex: Female
  Weight: 49.9 kg

DRUGS (10)
  1. DURAGESIC-100 [Suspect]
     Route: 062
     Dates: end: 20110101
  2. DURAGESIC-100 [Suspect]
     Indication: PAIN MANAGEMENT
     Route: 062
  3. DURAGESIC-100 [Suspect]
     Route: 062
     Dates: start: 20070101
  4. DURAGESIC-100 [Suspect]
     Route: 062
     Dates: start: 20111101
  5. DURAGESIC-100 [Suspect]
     Indication: ARTHRALGIA
     Route: 062
     Dates: start: 20070101
  6. DURAGESIC-100 [Suspect]
     Route: 062
     Dates: start: 20110101, end: 20111101
  7. DURAGESIC-100 [Suspect]
     Route: 062
     Dates: end: 20110101
  8. DURAGESIC-100 [Suspect]
     Route: 062
  9. DURAGESIC-100 [Suspect]
     Route: 062
     Dates: start: 20110101, end: 20111101
  10. DURAGESIC-100 [Suspect]
     Route: 062
     Dates: start: 20111101

REACTIONS (4)
  - DRUG INEFFECTIVE [None]
  - PRODUCT QUALITY ISSUE [None]
  - WRONG TECHNIQUE IN DRUG USAGE PROCESS [None]
  - FOOT DEFORMITY [None]
